FAERS Safety Report 8877371 (Version 1)
Quarter: 2012Q4

REPORT INFORMATION
  Report Type: 
  Country: US (occurrence: US)
  Receive Date: 20121023
  Receipt Date: 20121023
  Transmission Date: 20130627
  Serious: No
  Sender: FDA-Public Use
  Company Number: US-AMGEN-USASP2012059090

PATIENT
  Age: 35 Year
  Sex: Female
  Weight: 63.04 kg

DRUGS (6)
  1. ENBREL [Suspect]
     Indication: RHEUMATOID ARTHRITIS
     Dosage: 50 mg, qwk
     Route: 058
     Dates: start: 20120612, end: 20120920
  2. METHOTREXATE [Concomitant]
     Indication: RHEUMATOID ARTHRITIS
     Dosage: 2.5 mg, qwk
     Route: 048
     Dates: start: 2007, end: 20120920
  3. LYRICA [Concomitant]
     Indication: FIBROMYALGIA
     Dosage: 50 mg, qhs
     Route: 048
     Dates: start: 20110908
  4. NEXIUM                             /01479302/ [Concomitant]
     Indication: INFLAMMATION
     Dosage: 40 mg, qhs
     Route: 048
     Dates: start: 20070917
  5. DAYPRO [Concomitant]
     Indication: RHEUMATOID ARTHRITIS
     Dosage: 400 mg, qd
     Route: 048
     Dates: start: 20070917
  6. FOLIC ACID [Concomitant]
     Indication: RHEUMATOID ARTHRITIS
     Dosage: 1 mg, bid
     Route: 048
     Dates: start: 20070917, end: 20120920

REACTIONS (4)
  - Rheumatoid arthritis [Not Recovered/Not Resolved]
  - Injection site pain [Recovered/Resolved]
  - Injection site bruising [Recovered/Resolved]
  - Injection site reaction [Not Recovered/Not Resolved]
